FAERS Safety Report 12302210 (Version 3)
Quarter: 2016Q2

REPORT INFORMATION
  Report Type: Spontaneous
  Country: US (occurrence: US)
  Receive Date: 20160425
  Receipt Date: 20160509
  Transmission Date: 20160815
  Serious: Yes (Other)
  Sender: FDA-Public Use
  Company Number: US-BAYER-2016-076825

PATIENT
  Age: 74 Year
  Sex: Female
  Weight: 68.27 kg

DRUGS (2)
  1. BAYER EXTRA STRENGTH ASPIRIN [Suspect]
     Active Substance: ASPIRIN
     Indication: PAIN
     Dosage: 4-6, QD
     Route: 048
     Dates: start: 20160427
  2. PAIN STOPPER EXTRA [Suspect]
     Active Substance: ACETAMINOPHEN\ASPIRIN\CAFFEINE\SALICYLAMIDE
     Indication: BACK PAIN
     Dosage: 3 DF, QD
     Route: 048

REACTIONS (4)
  - Product use issue [None]
  - Fear [None]
  - Adverse event [None]
  - Epistaxis [None]
